FAERS Safety Report 21105178 (Version 1)
Quarter: 2022Q3

REPORT INFORMATION
  Report Type: Spontaneous
  Country: SG (occurrence: None)
  Receive Date: 20220720
  Receipt Date: 20220720
  Transmission Date: 20221026
  Serious: Yes (Death, Hospitalization)
  Sender: FDA-Public Use
  Company Number: SG-ROCHE-3138807

PATIENT
  Age: 57 Year
  Sex: Male

DRUGS (1)
  1. AVASTIN [Suspect]
     Active Substance: BEVACIZUMAB
     Indication: Colorectal cancer
     Route: 065
     Dates: end: 202111

REACTIONS (13)
  - Death [Fatal]
  - Ill-defined disorder [Unknown]
  - Metastases to liver [Unknown]
  - Appetite disorder [Unknown]
  - Lung neoplasm malignant [Unknown]
  - Colon cancer [Unknown]
  - COVID-19 [Unknown]
  - Investigation abnormal [Unknown]
  - Asthenia [Unknown]
  - Asthenia [Unknown]
  - Dyspnoea [Unknown]
  - General physical health deterioration [Unknown]
  - Blood pressure decreased [Unknown]
